FAERS Safety Report 13342975 (Version 1)
Quarter: 2017Q1

REPORT INFORMATION
  Report Type: Spontaneous
  Country: US (occurrence: US)
  Receive Date: 20170316
  Receipt Date: 20170316
  Transmission Date: 20170428
  Serious: Yes (Other)
  Sender: FDA-Public Use
  Company Number: US-LUNDBECK-DKLU2027716

PATIENT
  Age: 36 Year
  Sex: Male

DRUGS (1)
  1. SABRIL [Suspect]
     Active Substance: VIGABATRIN
     Indication: IDIOPATHIC GENERALISED EPILEPSY
     Route: 048
     Dates: start: 20160930

REACTIONS (3)
  - Seizure [Unknown]
  - Hypersomnia [Unknown]
  - Product quality issue [Unknown]

NARRATIVE: CASE EVENT DATE: 201703
